FAERS Safety Report 7770780-6 (Version None)
Quarter: 2011Q3

REPORT INFORMATION
  Report Type: 
  Country: None (occurrence: None)
  Receive Date: 20110922
  Receipt Date: 20110209
  Transmission Date: 20111222
  Serious: No
  Sender: FDA-Public Use
  Company Number: US-ASTRAZENECA-2007UW04373

PATIENT
  Sex: Female

DRUGS (8)
  1. SEROQUEL [Suspect]
     Indication: ANXIETY
     Dosage: 25-50 MG
     Route: 048
     Dates: start: 20020101, end: 20060601
  2. TRAZODONE HYDROCHLORIDE [Concomitant]
     Dates: start: 20080519, end: 20080817
  3. SEROQUEL [Suspect]
     Indication: SCHIZOPHRENIA
     Dosage: 25-50 MG
     Route: 048
     Dates: start: 20020101, end: 20060601
  4. SEROQUEL [Suspect]
     Indication: INSOMNIA
     Dosage: 25-50 MG
     Route: 048
     Dates: start: 20020101, end: 20060601
  5. SEROQUEL [Suspect]
     Indication: DEPRESSION
     Dosage: 25-50 MG
     Route: 048
     Dates: start: 20020101, end: 20060601
  6. HALDOL [Concomitant]
  7. PROZAC [Concomitant]
     Dates: start: 20090102, end: 20090201
  8. SLIM FAST,GREEN TEA, DIET PILLS [Concomitant]

REACTIONS (3)
  - POST-TRAUMATIC STRESS DISORDER [None]
  - STRESS [None]
  - TYPE 2 DIABETES MELLITUS [None]
